FAERS Safety Report 19424623 (Version 1)
Quarter: 2021Q2

REPORT INFORMATION
  Report Type: Spontaneous
  Country: US (occurrence: US)
  Receive Date: 20210616
  Receipt Date: 20210616
  Transmission Date: 20210717
  Serious: No
  Sender: FDA-Public Use
  Company Number: US-SK LIFE SCIENCE, INC-SKPVG-2021-000239

PATIENT

DRUGS (7)
  1. XCOPRI [Suspect]
     Active Substance: CENOBAMATE
     Indication: HEMIPARESIS
     Dosage: 50 MILLIGRAM, QD
     Route: 048
     Dates: start: 202102
  2. XCOPRI [Suspect]
     Active Substance: CENOBAMATE
     Indication: SEIZURE
  3. KEPPRA [Suspect]
     Active Substance: LEVETIRACETAM
     Indication: PRODUCT USED FOR UNKNOWN INDICATION
     Route: 065
  4. XCOPRI [Suspect]
     Active Substance: CENOBAMATE
     Indication: LIMB DISCOMFORT
  5. XCOPRI [Suspect]
     Active Substance: CENOBAMATE
     Indication: INTENTIONAL SELF-INJURY
  6. XCOPRI [Suspect]
     Active Substance: CENOBAMATE
     Indication: SEIZURE
  7. XCOPRI [Suspect]
     Active Substance: CENOBAMATE
     Indication: STURGE-WEBER SYNDROME
     Dosage: 12.5 MILLIGRAM, QD, 12.5MG/ 25 MG TITRATION PACK
     Route: 048
     Dates: start: 20210206

REACTIONS (5)
  - Product use in unapproved indication [Not Recovered/Not Resolved]
  - Seizure [Not Recovered/Not Resolved]
  - Anxiety [Recovered/Resolved]
  - Crying [Recovered/Resolved]
  - Aggression [Recovered/Resolved]

NARRATIVE: CASE EVENT DATE: 20210216
